FAERS Safety Report 7812707-4 (Version None)
Quarter: 2011Q4

REPORT INFORMATION
  Report Type: 
  Country: None (occurrence: None)
  Receive Date: 20111013
  Receipt Date: 20110929
  Transmission Date: 20120403
  Serious: Yes (Other)
  Sender: FDA-Public Use
  Company Number: DE-ELI_LILLY_AND_COMPANY-DE201108005593

PATIENT
  Sex: Female

DRUGS (11)
  1. CYMBALTA [Suspect]
     Dosage: 30 MG, QD
     Route: 048
  2. PREDNISONE [Concomitant]
     Dosage: 5 MG, UNK
  3. GABAPENTIN [Concomitant]
     Dosage: 600 MG, BID
  4. INSULIN [Concomitant]
  5. MIRTAZAPINE [Concomitant]
     Dosage: 15 MG, QD
  6. FOLSAN [Concomitant]
     Dosage: 5 MG, BID
  7. ASPIRIN [Concomitant]
     Dosage: 100 DF, QD
  8. METOPROLOL SUCCINATE [Concomitant]
     Dosage: UNK, QD
  9. TORSEMIDE [Concomitant]
     Dosage: 10 MG, QD
  10. VALORON [Concomitant]
  11. ALLOPURINOL [Concomitant]
     Dosage: 100 MG, QD

REACTIONS (1)
  - ELECTROCARDIOGRAM QT PROLONGED [None]
